FAERS Safety Report 13693250 (Version 1)
Quarter: 2017Q2

REPORT INFORMATION
  Report Type: Spontaneous
  Country: US (occurrence: US)
  Receive Date: 20170626
  Receipt Date: 20170626
  Transmission Date: 20170830
  Serious: Yes (Disabling)
  Sender: FDA-Public Use
  Company Number: None

PATIENT
  Age: 61 Year
  Sex: Male
  Weight: 76.5 kg

DRUGS (6)
  1. LISINOPRIL. [Concomitant]
     Active Substance: LISINOPRIL
  2. HYDROCHLORIZIDE [Concomitant]
  3. PROLIA [Suspect]
     Active Substance: DENOSUMAB
     Indication: OSTEOPOROSIS
     Dates: start: 20170210
  4. PAROXETINE. [Concomitant]
     Active Substance: PAROXETINE
  5. SIMVASTATIN. [Concomitant]
     Active Substance: SIMVASTATIN
  6. BABY ASPIRIN [Concomitant]
     Active Substance: ASPIRIN

REACTIONS (5)
  - Arthralgia [None]
  - Pain in extremity [None]
  - Drug ineffective [None]
  - Joint swelling [None]
  - Erythema [None]

NARRATIVE: CASE EVENT DATE: 20170217
